FAERS Safety Report 4433128-0 (Version None)
Quarter: 2004Q3

REPORT INFORMATION
  Report Type: 
  Country: None (occurrence: None)
  Receive Date: 20040823
  Receipt Date: 20040611
  Transmission Date: 20050211
  Serious: Yes (Hospitalization)
  Sender: FDA-Public Use
  Company Number: 2004-BP-04592BP

PATIENT
  Age: 19 Year
  Sex: Female

DRUGS (2)
  1. MICARDIS HCT [Suspect]
     Dosage: SEE TEXT (SEE TEXT, OVERDOSE WITH FATHER'S MEDICATION 4-5 TABLETS (80 MG/12.5MG) ),
     Dates: start: 20040610
  2. PRENATAL VITAMINS (PRENATAL VITAMINS) [Concomitant]

REACTIONS (6)
  - DIZZINESS POSTURAL [None]
  - HYPOTENSION [None]
  - HYPOVOLAEMIA [None]
  - OVERDOSE [None]
  - SELF-MEDICATION [None]
  - SUICIDAL IDEATION [None]
